FAERS Safety Report 8817640 (Version 1)
Quarter: 2012Q4

REPORT INFORMATION
  Report Type: 
  Country: US (occurrence: US)
  Receive Date: 20121002
  Receipt Date: 20121002
  Transmission Date: 20130627
  Serious: No
  Sender: FDA-Public Use
  Company Number: US-TEVA-359190USA

PATIENT
  Sex: Male
  Weight: 123.94 kg

DRUGS (2)
  1. QNASL [Suspect]
     Indication: NASAL CONGESTION
     Dosage: 2 sprays in each nostril at bedtime
     Route: 045
     Dates: start: 201208
  2. REMICADE [Concomitant]
     Indication: ARTHRITIS
     Route: 042

REACTIONS (1)
  - Respiratory tract congestion [Not Recovered/Not Resolved]
